FAERS Safety Report 25432912 (Version 1)
Quarter: 2025Q2

REPORT INFORMATION
  Report Type: Spontaneous
  Country: US (occurrence: None)
  Receive Date: 20250613
  Receipt Date: 20250613
  Transmission Date: 20250716
  Serious: No
  Sender: MDD OPERATIONS
  Company Number: US-MDD US Operations-MDD202110-002180

PATIENT
  Age: 64 Year
  Sex: Male
  Weight: 141.97 kg

DRUGS (3)
  1. APOKYN [Suspect]
     Active Substance: APOMORPHINE HYDROCHLORIDE
     Indication: Parkinson^s disease
     Route: 058
     Dates: start: 2021
  2. APOKYN [Suspect]
     Active Substance: APOMORPHINE HYDROCHLORIDE
     Indication: Dyskinesia
  3. APOKYN [Suspect]
     Active Substance: APOMORPHINE HYDROCHLORIDE
     Indication: On and off phenomenon

REACTIONS (5)
  - Tremor [Unknown]
  - Device breakage [Unknown]
  - Device malfunction [Unknown]
  - Drug dose omission by device [Unknown]
  - Device issue [Unknown]

NARRATIVE: CASE EVENT DATE: 20210101
